FAERS Safety Report 17954930 (Version 1)
Quarter: 2020Q2

REPORT INFORMATION
  Report Type: Spontaneous
  Country: US (occurrence: US)
  Receive Date: 20200626
  Receipt Date: 20200626
  Transmission Date: 20200714
  Serious: Yes (Hospitalization)
  Sender: FDA-Public Use
  Company Number: None

PATIENT
  Age: 61 Year
  Sex: Male

DRUGS (17)
  1. FUROSEMIDE. [Concomitant]
     Active Substance: FUROSEMIDE
  2. PROLIA [Concomitant]
     Active Substance: DENOSUMAB
  3. OMEPRAZOLE. [Concomitant]
     Active Substance: OMEPRAZOLE
  4. BENZONATATE. [Concomitant]
     Active Substance: BENZONATATE
  5. LUMIGAN [Concomitant]
     Active Substance: BIMATOPROST
  6. NYSTATIN. [Concomitant]
     Active Substance: NYSTATIN
  7. SIMBRINZA [Concomitant]
     Active Substance: BRIMONIDINE TARTRATE\BRINZOLAMIDE
  8. SMZ/TMP DS [Concomitant]
     Active Substance: SULFAMETHOXAZOLE\TRIMETHOPRIM
  9. VITAMIN D [Concomitant]
     Active Substance: VITAMIN D NOS
  10. MYCOPHENOLAT [Concomitant]
     Active Substance: MYCOPHENOLATE MOFETIL
  11. ESBRIET [Suspect]
     Active Substance: PIRFENIDONE
  12. DOXYCYCL HYC [Concomitant]
  13. METOPROL SUC [Concomitant]
  14. ATORVASTATIN [Concomitant]
     Active Substance: ATORVASTATIN
  15. IPRATROPIUM/SOL ALBUTER [Concomitant]
  16. MUPIROCIN. [Concomitant]
     Active Substance: MUPIROCIN
  17. PREDNISONE. [Concomitant]
     Active Substance: PREDNISONE

REACTIONS (2)
  - Therapy cessation [None]
  - Lung transplant [None]

NARRATIVE: CASE EVENT DATE: 20200623
